FAERS Safety Report 12099537 (Version 1)
Quarter: 2016Q1

REPORT INFORMATION
  Report Type: Spontaneous
  Country: US (occurrence: None)
  Receive Date: 20160219
  Receipt Date: 20160219
  Transmission Date: 20160526
  Serious: Yes (Hospitalization)
  Sender: FDA-Public Use
  Company Number: None

PATIENT
  Age: 30 Year
  Sex: Male

DRUGS (1)
  1. CISPLATIN. [Suspect]
     Active Substance: CISPLATIN
     Dates: end: 20160126

REACTIONS (9)
  - Failure to thrive [None]
  - Dysphagia [None]
  - Aspiration [None]
  - Odynophagia [None]
  - Vomiting [None]
  - Skin abrasion [None]
  - Neck pain [None]
  - Mucosal inflammation [None]
  - Nausea [None]

NARRATIVE: CASE EVENT DATE: 20160201
